FAERS Safety Report 7620383-9 (Version None)
Quarter: 2011Q3

REPORT INFORMATION
  Report Type: 
  Country: None (occurrence: None)
  Receive Date: 20110718
  Receipt Date: 20110718
  Transmission Date: 20111222
  Serious: Yes (Other)
  Sender: FDA-Public Use
  Company Number: None

PATIENT
  Age: 49 Year
  Sex: Female
  Weight: 61.234 kg

DRUGS (2)
  1. OMNARIS [Suspect]
     Indication: COUGH
     Dosage: ONE SPRAY EACH NOSTRIL
     Route: 045
     Dates: start: 20110628, end: 20110629
  2. OMNARIS [Suspect]
     Indication: NASAL CONGESTION
     Dosage: ONE SPRAY EACH NOSTRIL
     Route: 045
     Dates: start: 20110628, end: 20110629

REACTIONS (2)
  - RASH PAPULAR [None]
  - PRURITUS [None]
